FAERS Safety Report 20511620 (Version 11)
Quarter: 2022Q4

REPORT INFORMATION
  Report Type: Report from Study
  Country: US (occurrence: US)
  Receive Date: 20220224
  Receipt Date: 20221012
  Transmission Date: 20230113
  Serious: Yes (Other)
  Sender: FDA-Public Use
  Company Number: US-ABBVIE-22K-163-4291539-00

PATIENT
  Sex: Female

DRUGS (12)
  1. VENCLEXTA [Suspect]
     Active Substance: VENETOCLAX
     Indication: Chronic lymphocytic leukaemia
     Route: 048
     Dates: start: 20220919
  2. VENCLEXTA [Suspect]
     Active Substance: VENETOCLAX
     Indication: Chronic lymphocytic leukaemia
     Route: 048
     Dates: start: 20220912, end: 2022
  3. VENCLEXTA [Suspect]
     Active Substance: VENETOCLAX
     Indication: Chronic lymphocytic leukaemia
     Route: 048
     Dates: start: 20220203, end: 20220209
  4. VENCLEXTA [Suspect]
     Active Substance: VENETOCLAX
     Indication: Chronic lymphocytic leukaemia
     Route: 048
     Dates: start: 20220210, end: 20220216
  5. VENCLEXTA [Suspect]
     Active Substance: VENETOCLAX
     Indication: Chronic lymphocytic leukaemia
     Route: 048
     Dates: start: 20220217, end: 20220223
  6. VENCLEXTA [Suspect]
     Active Substance: VENETOCLAX
     Indication: Chronic lymphocytic leukaemia
     Route: 048
     Dates: start: 20220224, end: 2022
  7. VENCLEXTA [Suspect]
     Active Substance: VENETOCLAX
     Indication: Chronic lymphocytic leukaemia
     Route: 048
     Dates: start: 20220303, end: 202203
  8. VENCLEXTA [Suspect]
     Active Substance: VENETOCLAX
     Indication: Chronic lymphocytic leukaemia
     Route: 048
     Dates: start: 20220310, end: 20220715
  9. VENCLEXTA [Suspect]
     Active Substance: VENETOCLAX
     Indication: Chronic lymphocytic leukaemia
     Route: 048
     Dates: start: 20220805, end: 2022
  10. ASPIRIN [Concomitant]
     Active Substance: ASPIRIN
     Indication: Product used for unknown indication
  11. MODERNA COVID-19 VACCINE [Concomitant]
     Active Substance: ELASOMERAN
     Indication: COVID-19 immunisation
     Dosage: FIRST DOSE (FREQUENCY-ONE IN ONCE)
     Route: 030
     Dates: start: 20210412, end: 20210412
  12. MODERNA COVID-19 VACCINE [Concomitant]
     Active Substance: ELASOMERAN
     Indication: COVID-19 immunisation
     Dosage: SECOND DOSE (FREQUENCY-ONE IN ONCE)
     Route: 030
     Dates: start: 20210510, end: 20210510

REACTIONS (51)
  - Gastric haemorrhage [Unknown]
  - Chromaturia [Unknown]
  - Diarrhoea [Not Recovered/Not Resolved]
  - Joint range of motion decreased [Unknown]
  - Arthralgia [Recovering/Resolving]
  - Abdominal rigidity [Not Recovered/Not Resolved]
  - Migraine [Unknown]
  - Abdominal discomfort [Unknown]
  - Fatigue [Recovering/Resolving]
  - Hypersomnia [Not Recovered/Not Resolved]
  - Middle insomnia [Unknown]
  - Vomiting [Recovered/Resolved]
  - Balance disorder [Recovered/Resolved]
  - Oesophagitis [Not Recovered/Not Resolved]
  - Sleep disorder [Recovering/Resolving]
  - Faeces discoloured [Unknown]
  - Migraine [Recovered/Resolved]
  - Joint stiffness [Not Recovered/Not Resolved]
  - Pain [Unknown]
  - Faeces soft [Not Recovered/Not Resolved]
  - Paraesthesia [Recovered/Resolved]
  - Musculoskeletal discomfort [Recovering/Resolving]
  - Tremor [Recovered/Resolved]
  - Breast discomfort [Recovered/Resolved]
  - Chest discomfort [Recovered/Resolved]
  - Sensory disturbance [Recovered/Resolved]
  - Spinal pain [Recovered/Resolved]
  - Sinusitis [Recovered/Resolved]
  - Alopecia [Not Recovered/Not Resolved]
  - Feeling cold [Not Recovered/Not Resolved]
  - Vertigo positional [Recovered/Resolved]
  - Sinusitis [Recovering/Resolving]
  - Hypersomnia [Recovering/Resolving]
  - Peripheral coldness [Not Recovered/Not Resolved]
  - Neutrophil count increased [Recovering/Resolving]
  - Restlessness [Recovering/Resolving]
  - Periorbital swelling [Not Recovered/Not Resolved]
  - Lyme disease [Unknown]
  - Feeling of body temperature change [Not Recovered/Not Resolved]
  - Sneezing [Not Recovered/Not Resolved]
  - Lymph node palpable [Not Recovered/Not Resolved]
  - Vision blurred [Not Recovered/Not Resolved]
  - Diarrhoea [Recovered/Resolved]
  - Vertigo [Recovering/Resolving]
  - Arthritis [Recovering/Resolving]
  - Diarrhoea [Recovered/Resolved]
  - Constipation [Recovered/Resolved]
  - Myalgia [Recovering/Resolving]
  - Diarrhoea [Recovered/Resolved]
  - Pain in extremity [Unknown]
  - Asthenia [Unknown]

NARRATIVE: CASE EVENT DATE: 20220101
